FAERS Safety Report 8284963-2 (Version None)
Quarter: 2012Q2

REPORT INFORMATION
  Report Type: 
  Country: None (occurrence: None)
  Receive Date: 20120413
  Receipt Date: 20111227
  Transmission Date: 20120825
  Serious: No
  Sender: FDA-Public Use
  Company Number: US-ASTRAZENECA-2010SE06233

PATIENT
  Age: 77 Year
  Sex: Female
  Weight: 48.1 kg

DRUGS (6)
  1. NEXIUM [Suspect]
     Indication: GASTROOESOPHAGEAL REFLUX DISEASE
     Route: 048
  2. CALCIUM CARBONATE [Concomitant]
  3. ATACAND [Concomitant]
  4. NEXIUM [Suspect]
     Route: 048
  5. NEXIUM [Suspect]
     Route: 048
     Dates: start: 20100801
  6. NEXIUM [Suspect]
     Route: 048
     Dates: start: 20100801

REACTIONS (8)
  - COUGH [None]
  - HEADACHE [None]
  - BLOOD SODIUM ABNORMAL [None]
  - SINUS TACHYCARDIA [None]
  - BLOOD CALCIUM ABNORMAL [None]
  - RHINITIS ALLERGIC [None]
  - BLOOD POTASSIUM ABNORMAL [None]
  - BLOOD PRESSURE INCREASED [None]
